FAERS Safety Report 4441567-7 (Version None)
Quarter: 2004Q3

REPORT INFORMATION
  Report Type: 
  Country: None (occurrence: None)
  Receive Date: 20040728
  Receipt Date: 20040506
  Transmission Date: 20050211
  Serious: No
  Sender: FDA-Public Use
  Company Number: USA040566897

PATIENT
  Age: 11 Year
  Sex: Female
  Weight: 55 kg

DRUGS (1)
  1. STRATTERA [Suspect]
     Indication: ATTENTION DEFICIT/HYPERACTIVITY DISORDER
     Dosage: 80 MG DAY
     Dates: start: 20040101

REACTIONS (3)
  - BLOOD THYROID STIMULATING HORMONE INCREASED [None]
  - ENURESIS [None]
  - PRESCRIBED OVERDOSE [None]
